FAERS Safety Report 9537752 (Version 2)
Quarter: 2013Q3

REPORT INFORMATION
  Report Type: Spontaneous
  Country: US (occurrence: US)
  Receive Date: 20130919
  Receipt Date: 20130920
  Transmission Date: 20140515
  Serious: Yes (Death, Hospitalization)
  Sender: FDA-Public Use
  Company Number: US-ASTRAZENECA-2013SE69630

PATIENT
  Sex: Male

DRUGS (4)
  1. SYNAGIS [Suspect]
     Route: 042
  2. SPIRONOLACTONE [Concomitant]
     Dosage: THREE TIMES A DAY
  3. ALBUMIN [Concomitant]
     Route: 042
  4. FUROSEMIDE [Concomitant]

REACTIONS (2)
  - Respiratory syncytial virus infection [Fatal]
  - Off label use [Unknown]
